FAERS Safety Report 9397782 (Version 1)
Quarter: 2013Q3

REPORT INFORMATION
  Report Type: Spontaneous
  Country: US (occurrence: US)
  Receive Date: 20130712
  Receipt Date: 20130712
  Transmission Date: 20140515
  Serious: Yes (Hospitalization)
  Sender: FDA-Public Use
  Company Number: US-B.I. PHARMACEUTICALS,INC./RIDGEFIELD-2013-BI-19878BP

PATIENT
  Sex: 0

DRUGS (1)
  1. TRADJENTA [Suspect]

REACTIONS (1)
  - Myocardial infarction [Recovered/Resolved]
